FAERS Safety Report 6370770-4 (Version None)
Quarter: 2009Q3

REPORT INFORMATION
  Report Type: 
  Country: None (occurrence: None)
  Receive Date: 20090923
  Receipt Date: 20071220
  Transmission Date: 20100115
  Serious: No
  Sender: FDA-Public Use
  Company Number: US-ASTRAZENECA-2006UW24831

PATIENT
  Sex: Female

DRUGS (28)
  1. SEROQUEL [Suspect]
     Indication: SCHIZOPHRENIA
     Route: 048
     Dates: start: 20010101
  2. SEROQUEL [Suspect]
     Indication: BIPOLAR DISORDER
     Route: 048
     Dates: start: 20010101
  3. SEROQUEL [Suspect]
     Indication: DEPRESSION
     Route: 048
     Dates: start: 20010101
  4. SEROQUEL [Suspect]
     Dosage: 200 MG
     Route: 048
  5. SEROQUEL [Suspect]
     Dosage: 200 MG
     Route: 048
  6. SEROQUEL [Suspect]
     Dosage: 200 MG
     Route: 048
  7. LORAZEPAM [Concomitant]
  8. PHENOBARBITAL [Concomitant]
  9. LIDOCAINE [Concomitant]
  10. MAALOX [Concomitant]
  11. LEVALBUTEROL HCL [Concomitant]
  12. MECLIZINE [Concomitant]
  13. KETOROLAC TROMETHAMINE [Concomitant]
  14. HYDROMORPHONE [Concomitant]
  15. LEVOFLOXACIN [Concomitant]
  16. PROMETHAZINE [Concomitant]
  17. DIPHENHYDRAMINE HCL [Concomitant]
  18. BISACODYL [Concomitant]
  19. VICODIN [Concomitant]
  20. CEFTRIAXONE [Concomitant]
  21. DEXAMETHASONE [Concomitant]
  22. ZITHROMAX [Concomitant]
  23. TUSSIONEX [Concomitant]
  24. HYCET [Concomitant]
  25. CEPHALEXIN [Concomitant]
  26. TERCONAZOLE [Concomitant]
  27. AMOXICILLIN [Concomitant]
  28. FLUCONAZOLE [Concomitant]

REACTIONS (1)
  - HYPERGLYCAEMIA [None]
